FAERS Safety Report 25607184 (Version 1)
Quarter: 2025Q3

REPORT INFORMATION
  Report Type: Spontaneous
  Country: US (occurrence: None)
  Receive Date: 20250725
  Receipt Date: 20250725
  Transmission Date: 20251020
  Serious: Yes (Other)
  Sender: FDA-CTU
  Company Number: None

PATIENT
  Age: 54 Year
  Sex: Female
  Weight: 73.35 kg

DRUGS (23)
  1. LEFLUNOMIDE [Suspect]
     Active Substance: LEFLUNOMIDE
     Indication: Rheumatoid arthritis
     Dosage: OTHER QUANTITY : 30 TABLET(S);?FREQUENCY : DAILY;?
     Route: 048
     Dates: start: 20250701, end: 20250716
  2. Implantable cardiac loop [Concomitant]
  3. port [Concomitant]
  4. neurostimulator for gastroparesis [Concomitant]
  5. CARVEDILOL [Concomitant]
     Active Substance: CARVEDILOL
  6. ALLOPURINOL [Concomitant]
     Active Substance: ALLOPURINOL
  7. b-12 shot [Concomitant]
  8. VITAMIN C [Concomitant]
     Active Substance: ASCORBIC ACID
  9. VITAMIN D [Concomitant]
     Active Substance: VITAMIN D NOS
  10. VITAMIN K [Concomitant]
     Active Substance: PHYTONADIONE
  11. IRON [Concomitant]
     Active Substance: IRON
  12. EFFEXOR [Concomitant]
     Active Substance: VENLAFAXINE HYDROCHLORIDE
  13. PROTONIX [Concomitant]
     Active Substance: PANTOPRAZOLE SODIUM
  14. ADVAIR HFA [Concomitant]
     Active Substance: FLUTICASONE PROPIONATE\SALMETEROL XINAFOATE
  15. LEVOTHYROXINE [Concomitant]
     Active Substance: LEVOTHYROXINE
  16. SCOPOLAMINE [Concomitant]
     Active Substance: SCOPOLAMINE
  17. TOPAMAX [Concomitant]
     Active Substance: TOPIRAMATE
  18. ENBREL [Concomitant]
     Active Substance: ETANERCEPT
  19. PHENERGAN [Concomitant]
     Active Substance: PROMETHAZINE HYDROCHLORIDE
  20. ADDERALL [Concomitant]
     Active Substance: AMPHETAMINE ASPARTATE\AMPHETAMINE SULFATE\DEXTROAMPHETAMINE SACCHARATE\DEXTROAMPHETAMINE SULFATE
  21. BELSOMRA [Concomitant]
     Active Substance: SUVOREXANT
  22. GABAPENTIN [Concomitant]
     Active Substance: GABAPENTIN
  23. CARAFATE [Concomitant]
     Active Substance: SUCRALFATE

REACTIONS (2)
  - Blister [None]
  - Pain [None]

NARRATIVE: CASE EVENT DATE: 20250701
